FAERS Safety Report 6134228-X (Version None)
Quarter: 2009Q1

REPORT INFORMATION
  Report Type: 
  Country: None (occurrence: None)
  Receive Date: 20090326
  Receipt Date: 20090318
  Transmission Date: 20090719
  Serious: Yes (Hospitalization)
  Sender: FDA-Public Use
  Company Number: KP-GENENTECH-279557

PATIENT
  Sex: Female

DRUGS (4)
  1. RITUXIMAB [Suspect]
     Indication: B-CELL LYMPHOMA
     Dosage: 375 MG/M2, UNK
     Route: 042
     Dates: start: 20080805
  2. DEXAMETHASONE [Suspect]
     Indication: B-CELL LYMPHOMA
     Dosage: 20 MG/M2, UNK
     Route: 048
     Dates: start: 20080805
  3. FLUDARABINE PHOSPHATE [Suspect]
     Indication: B-CELL LYMPHOMA
     Dosage: 25 MG/M2, UNK
     Route: 042
     Dates: start: 20080805
  4. NOVANTRONE [Suspect]
     Indication: B-CELL LYMPHOMA
     Dosage: 10 MG/M2, UNK
     Route: 042
     Dates: start: 20080805

REACTIONS (1)
  - FEBRILE NEUTROPENIA [None]
